FAERS Safety Report 10045020 (Version 1)
Quarter: 2014Q1

REPORT INFORMATION
  Report Type: Spontaneous
  Country: US (occurrence: None)
  Receive Date: 20140306
  Receipt Date: 20140306
  Transmission Date: 20141002
  Serious: Yes (Hospitalization)
  Sender: FDA-Public Use
  Company Number: 163-21880-13053276

PATIENT
  Age: 81 Year
  Sex: Male

DRUGS (9)
  1. REVLIMID (LENALIDOMIDE) (CAPSULES) [Suspect]
     Indication: MYELODYSPLASTIC SYNDROME
     Route: 048
     Dates: start: 20121127, end: 20130315
  2. METOPROLOL (METOPROLOL) [Concomitant]
  3. GABAPENTIN (GABAPENTIN) [Concomitant]
  4. SIMVASTATIN (SIMVASTATIN) [Concomitant]
  5. TEMAZEPAM (TEMAZEPAM) [Concomitant]
  6. FOLIC ACID (FOLIC AICD) [Concomitant]
  7. CYANOBALAMIN (CYANOCOBALAMIN) [Concomitant]
  8. BENZONATATE (BENZONATATE) [Concomitant]
  9. LASIX (FUROSEMIDE) [Concomitant]

REACTIONS (3)
  - Sepsis [None]
  - Renal failure acute [None]
  - Pneumonia [None]
